FAERS Safety Report 16328664 (Version 4)
Quarter: 2019Q4

REPORT INFORMATION
  Report Type: Spontaneous
  Country: FR (occurrence: FR)
  Receive Date: 20190518
  Receipt Date: 20191219
  Transmission Date: 20200122
  Serious: Yes (Life-Threatening, Other)
  Sender: FDA-Public Use
  Company Number: PHHY2019FR111581

PATIENT
  Sex: Male

DRUGS (3)
  1. PERAMPANEL [Concomitant]
     Active Substance: PERAMPANEL
     Indication: PRODUCT USED FOR UNKNOWN INDICATION
     Dosage: UNK
     Route: 065
  2. CLOBASONE [Concomitant]
     Indication: PRODUCT USED FOR UNKNOWN INDICATION
     Dosage: 30 MG, QD (20 MG IN THE MORNING, 10 MG IN THE EVENING)
     Route: 065
  3. OXCARBAZEPINE. [Suspect]
     Active Substance: OXCARBAZEPINE
     Indication: SEIZURE
     Dosage: 300 MG, BID
     Route: 065

REACTIONS (36)
  - Seizure [Unknown]
  - Limb discomfort [Unknown]
  - Abdominal distension [Unknown]
  - Depression [Unknown]
  - Asthenia [Unknown]
  - Suicidal ideation [Unknown]
  - Tooth injury [Unknown]
  - Chest pain [Unknown]
  - Feeling cold [Unknown]
  - Balance disorder [Unknown]
  - Memory impairment [Unknown]
  - Speech disorder [Unknown]
  - Arthralgia [Unknown]
  - Nasal discomfort [Unknown]
  - Fatigue [Unknown]
  - Tendonitis [Unknown]
  - Mouth ulceration [Unknown]
  - Muscular weakness [Unknown]
  - Disturbance in attention [Unknown]
  - Fall [Unknown]
  - Heart rate irregular [Unknown]
  - Headache [Unknown]
  - Diplopia [Unknown]
  - Tremor [Unknown]
  - Weight increased [Unknown]
  - Vision blurred [Unknown]
  - Partial seizures [Unknown]
  - Heart rate increased [Unknown]
  - Dizziness [Unknown]
  - Dyspnoea [Unknown]
  - Myalgia [Unknown]
  - Sleep disorder [Unknown]
  - Muscle spasms [Unknown]
  - Chills [Unknown]
  - Visual impairment [Unknown]
  - Constipation [Unknown]
